FAERS Safety Report 5025341-9 (Version None)
Quarter: 2006Q2

REPORT INFORMATION
  Report Type: 
  Country: None (occurrence: None)
  Receive Date: 20060607
  Receipt Date: 20060605
  Transmission Date: 20061013
  Serious: Yes (Hospitalization)
  Sender: FDA-Public Use
  Company Number: 2006S1000072

PATIENT
  Sex: Male

DRUGS (1)
  1. CUBICIN [Suspect]
     Indication: ENDOCARDITIS STAPHYLOCOCCAL
     Dosage: 6 MG/KG; Q24H; IV
     Route: 042
     Dates: start: 20060101

REACTIONS (4)
  - ANXIETY [None]
  - CARDIAC PACEMAKER MALFUNCTION [None]
  - DEVICE RELATED INFECTION [None]
  - EJECTION FRACTION DECREASED [None]
